FAERS Safety Report 16457892 (Version 2)
Quarter: 2019Q3

REPORT INFORMATION
  Report Type: Spontaneous
  Country: US (occurrence: US)
  Receive Date: 20190620
  Receipt Date: 20190730
  Transmission Date: 20191004
  Serious: Yes (Hospitalization)
  Sender: FDA-Public Use
  Company Number: US-AMGEN-USASP2019096363

PATIENT
  Sex: Female

DRUGS (4)
  1. FASLODEX [Concomitant]
     Active Substance: FULVESTRANT
     Dosage: 500 MILLIGRAM, QMO
  2. XGEVA [Suspect]
     Active Substance: DENOSUMAB
     Indication: PRODUCT USED FOR UNKNOWN INDICATION
     Dosage: UNK UNK, Q3MO
     Route: 065
  3. XGEVA [Suspect]
     Active Substance: DENOSUMAB
     Dosage: UNK, QMO
     Route: 065
  4. IBRANCE [Concomitant]
     Active Substance: PALBOCICLIB
     Dosage: 75 MILLIGRAM, 3 TIMES/WK

REACTIONS (3)
  - Nausea [Unknown]
  - Off label use [Unknown]
  - Anaemia [Unknown]
